FAERS Safety Report 13664251 (Version 1)
Quarter: 2017Q2

REPORT INFORMATION
  Report Type: Spontaneous
  Country: JP (occurrence: JP)
  Receive Date: 20170619
  Receipt Date: 20170619
  Transmission Date: 20170830
  Serious: Yes (Hospitalization)
  Sender: FDA-Public Use
  Company Number: JP-FERRINGPH-2017FE02830

PATIENT

DRUGS (1)
  1. GONAX [Suspect]
     Active Substance: DEGARELIX
     Indication: PROSTATE CANCER
     Dosage: 120 MG, MONTHLY
     Route: 058

REACTIONS (3)
  - Spinal osteoarthritis [Unknown]
  - Off label use [Recovered/Resolved]
  - Intentional underdose [Recovered/Resolved]
